FAERS Safety Report 6178285-3 (Version None)
Quarter: 2009Q2

REPORT INFORMATION
  Report Type: 
  Country: None (occurrence: None)
  Receive Date: 20090504
  Receipt Date: 20090427
  Transmission Date: 20091009
  Serious: Yes (Hospitalization)
  Sender: FDA-Public Use
  Company Number: B0572393A

PATIENT
  Sex: Female

DRUGS (4)
  1. LAPATINIB [Suspect]
     Indication: BREAST CANCER
     Dosage: 1250MG PER DAY
     Route: 048
     Dates: start: 20090414
  2. MYOCET [Suspect]
     Indication: BREAST CANCER
     Dosage: 94.2MG EVERY 3 WEEKS
     Route: 042
     Dates: start: 20090414
  3. TAXOL [Suspect]
     Indication: BREAST CANCER
     Dosage: 274.75MG EVERY 3 WEEKS
     Route: 042
     Dates: start: 20090414
  4. ONDANSETRON [Concomitant]
     Indication: NAUSEA
     Dosage: 8MG PER DAY
     Route: 048
     Dates: start: 20090414

REACTIONS (6)
  - DIARRHOEA [None]
  - FATIGUE [None]
  - HAEMOGLOBIN DECREASED [None]
  - LEUKOPENIA [None]
  - PLATELET COUNT DECREASED [None]
  - PYREXIA [None]
